FAERS Safety Report 7130914-3 (Version None)
Quarter: 2010Q4

REPORT INFORMATION
  Report Type: 
  Country: None (occurrence: None)
  Receive Date: 20101201
  Receipt Date: 20101117
  Transmission Date: 20110411
  Serious: Yes (Other)
  Sender: FDA-Public Use
  Company Number: US-PFIZER INC-US-WYE-H18226010

PATIENT
  Sex: Female
  Weight: 81.633 kg

DRUGS (9)
  1. PRISTIQ [Suspect]
     Indication: DEPRESSION
     Dosage: 50 MG, 1X/DAY
     Route: 048
     Dates: start: 20101013
  2. LEXAPRO [Concomitant]
  3. ZOCOR [Concomitant]
  4. XANAX [Concomitant]
  5. LEVOTHYROXINE [Concomitant]
  6. ACETYLSALICYLIC ACID [Concomitant]
  7. SOMA [Concomitant]
  8. ABILIFY [Concomitant]
  9. LISINOPRIL [Concomitant]

REACTIONS (1)
  - BLINDNESS TRANSIENT [None]
